FAERS Safety Report 9723125 (Version 1)
Quarter: 2013Q4

REPORT INFORMATION
  Report Type: Spontaneous
  Country: US (occurrence: US)
  Receive Date: 20131202
  Receipt Date: 20131202
  Transmission Date: 20140711
  Serious: No
  Sender: FDA-Public Use
  Company Number: US-BAYER-2013-147066

PATIENT
  Age: 65 Year
  Sex: Female
  Weight: 81.63 kg

DRUGS (2)
  1. ALEVE CAPLET [Suspect]
     Indication: HEADACHE
     Dosage: 2 DF, PRN
     Route: 048
  2. ALEVE CAPLET [Suspect]
     Indication: HEADACHE
     Dosage: UNK UNK, Q3HR
     Dates: start: 20131125

REACTIONS (2)
  - Drug ineffective [None]
  - Incorrect dose administered [None]
